FAERS Safety Report 18328085 (Version 1)
Quarter: 2020Q3

REPORT INFORMATION
  Report Type: Spontaneous
  Country: CN (occurrence: CN)
  Receive Date: 20200930
  Receipt Date: 20200930
  Transmission Date: 20201103
  Serious: Yes (Hospitalization)
  Sender: FDA-Public Use
  Company Number: CN-B.I. PHARMACEUTICALS,INC./RIDGEFIELD-2020-BI-050710

PATIENT
  Age: 81 Year
  Sex: Male
  Weight: 50 kg

DRUGS (6)
  1. VENTOLIN [Concomitant]
     Active Substance: ALBUTEROL SULFATE
     Indication: DYSPNOEA
  2. CHLOROQUINE. [Concomitant]
     Active Substance: CHLOROQUINE
     Indication: MUSCLE SPASMS
     Route: 055
     Dates: start: 20200829, end: 20200912
  3. ATROVENT [Suspect]
     Active Substance: IPRATROPIUM BROMIDE
     Indication: MUSCLE SPASMS
     Route: 055
     Dates: start: 20200829, end: 20200912
  4. ATROVENT [Suspect]
     Active Substance: IPRATROPIUM BROMIDE
     Indication: DYSPNOEA
  5. CHLOROQUINE. [Concomitant]
     Active Substance: CHLOROQUINE
     Indication: DYSPNOEA
  6. VENTOLIN [Concomitant]
     Active Substance: ALBUTEROL SULFATE
     Indication: MUSCLE SPASMS
     Route: 055
     Dates: start: 20200829, end: 20200912

REACTIONS (1)
  - Pupils unequal [Recovering/Resolving]

NARRATIVE: CASE EVENT DATE: 20200912
